APPROVED DRUG PRODUCT: CUPRIC CHLORIDE
Active Ingredient: CUPRIC CHLORIDE
Strength: EQ 0.4MG COPPER/ML
Dosage Form/Route: INJECTABLE;INJECTION
Application: A217287 | Product #001 | TE Code: AP
Applicant: AMNEAL EU LTD
Approved: Jan 26, 2026 | RLD: No | RS: No | Type: RX